FAERS Safety Report 9149772 (Version 2)
Quarter: 2013Q1

REPORT INFORMATION
  Report Type: Spontaneous
  Country: ZA (occurrence: ZA)
  Receive Date: 20130308
  Receipt Date: 20130319
  Transmission Date: 20140127
  Serious: Yes (Other)
  Sender: FDA-Public Use
  Company Number: ZA-PFIZER INC-2013077024

PATIENT
  Age: 59 Year
  Sex: Female

DRUGS (1)
  1. CHAMPIX [Suspect]
     Indication: SMOKING CESSATION THERAPY
     Dosage: UNK
     Route: 048
     Dates: start: 201204

REACTIONS (11)
  - Personality change [Unknown]
  - Panic attack [Unknown]
  - Abnormal behaviour [Unknown]
  - Crying [Unknown]
  - Malaise [Unknown]
  - Paranoia [Unknown]
  - Abnormal dreams [Unknown]
  - Tremor [Not Recovered/Not Resolved]
  - Insomnia [Unknown]
  - Nervousness [Unknown]
  - Mood altered [Unknown]
